FAERS Safety Report 14743794 (Version 1)
Quarter: 2018Q2

REPORT INFORMATION
  Report Type: Spontaneous
  Country: US (occurrence: US)
  Receive Date: 20180410
  Receipt Date: 20180410
  Transmission Date: 20180711
  Serious: No
  Sender: FDA-Public Use
  Company Number: US-ASTRAZENECA-2018SE32251

PATIENT
  Sex: Female
  Weight: 52.6 kg

DRUGS (2)
  1. SYMBICORT [Suspect]
     Active Substance: BUDESONIDE\FORMOTEROL FUMARATE DIHYDRATE
     Indication: ASTHMA
     Route: 055
     Dates: start: 201701
  2. SYMBICORT [Suspect]
     Active Substance: BUDESONIDE\FORMOTEROL FUMARATE DIHYDRATE
     Indication: ASTHMA
     Dosage: 160/4.5, 2 PUFFS IN THE MORNING AND 2 PUFFS IN THE EVENING
     Route: 055

REACTIONS (4)
  - Foreign body in respiratory tract [Unknown]
  - Drug dose omission [Unknown]
  - Device issue [Unknown]
  - Off label use [Unknown]
